FAERS Safety Report 16231742 (Version 2)
Quarter: 2019Q2

REPORT INFORMATION
  Report Type: Spontaneous
  Country: JP (occurrence: JP)
  Receive Date: 20190424
  Receipt Date: 20190524
  Transmission Date: 20190711
  Serious: Yes (Hospitalization)
  Sender: FDA-Public Use
  Company Number: JP-TAKEDA-2019TJP008050AA

PATIENT
  Age: 59 Year
  Sex: Male
  Weight: 74 kg

DRUGS (5)
  1. PREDONINE [Suspect]
     Active Substance: PREDNISOLONE
     Indication: PRODUCT USED FOR UNKNOWN INDICATION
     Dosage: 15 MILLIGRAM
     Route: 048
     Dates: start: 201708
  2. PENTASA [Concomitant]
     Active Substance: MESALAMINE
     Dosage: 2.12 GRAM, BID
     Route: 048
     Dates: start: 20081216
  3. PREDONINE [Suspect]
     Active Substance: PREDNISOLONE
     Dosage: 10 MILLIGRAM, BID
     Route: 048
     Dates: start: 20190319
  4. HUMIRA [Suspect]
     Active Substance: ADALIMUMAB
     Indication: PRODUCT USED FOR UNKNOWN INDICATION
     Dosage: 40 MILLIGRAM, Q2WEEKS
     Route: 058
     Dates: start: 20190121
  5. ENTYVIO [Suspect]
     Active Substance: VEDOLIZUMAB
     Indication: COLITIS ULCERATIVE
     Dosage: 300 MILLIGRAM
     Route: 042
     Dates: start: 20190404

REACTIONS (1)
  - Cellulitis [Recovering/Resolving]

NARRATIVE: CASE EVENT DATE: 20190407
